FAERS Safety Report 6438181-0 (Version None)
Quarter: 2009Q4

REPORT INFORMATION
  Report Type: 
  Country: None (occurrence: None)
  Receive Date: 20091112
  Receipt Date: 20090914
  Transmission Date: 20100525
  Serious: Yes (Hospitalization, Other)
  Sender: FDA-Public Use
  Company Number: US-PFIZER INC-2009238849

PATIENT
  Sex: Male
  Weight: 92.971 kg

DRUGS (9)
  1. CHANTIX [Suspect]
     Indication: SMOKING CESSATION THERAPY
     Dosage: UNK, 2X/DAY
     Route: 048
     Dates: start: 20090617, end: 20090628
  2. CHANTIX [Suspect]
  3. AMLODIPINE BESILATE [Concomitant]
     Indication: HYPERTENSION
  4. LIPITOR [Concomitant]
     Dosage: 10 MG, DAILY
     Route: 048
  5. ZETIA [Concomitant]
     Dosage: 10 MG, DAILY
     Route: 048
  6. MOEXIPRIL [Concomitant]
     Dosage: 15 MG, DAILY
     Route: 048
  7. MELOXICAM [Concomitant]
     Dosage: 7.5 MG, 2X/DAY
     Route: 048
  8. NEXIUM [Concomitant]
     Dosage: 40 UNK, DAILY
     Route: 048
  9. ACETYLSALICYLIC ACID [Concomitant]
     Dosage: 81 MG, DAILY
     Route: 048

REACTIONS (7)
  - ASTHENIA [None]
  - BRADYCARDIA [None]
  - DIZZINESS [None]
  - FALL [None]
  - FATIGUE [None]
  - FEELING ABNORMAL [None]
  - LOSS OF CONSCIOUSNESS [None]
